FAERS Safety Report 4839203-0 (Version None)
Quarter: 2005Q4

REPORT INFORMATION
  Report Type: 
  Country: None (occurrence: None)
  Receive Date: 20051125
  Receipt Date: 20041103
  Transmission Date: 20060501
  Serious: Yes (Hospitalization)
  Sender: FDA-Public Use
  Company Number: HQWYE275308NOV04

PATIENT
  Age: 50 Year
  Sex: Male

DRUGS (14)
  1. RAPAMUNE [Suspect]
     Indication: IMMUNOSUPPRESSION
     Dosage: ORAL
     Route: 048
     Dates: end: 20041026
  2. PREDNISONE [Concomitant]
  3. ALLOPURINOL [Concomitant]
  4. ACETAMINOPHEN [Concomitant]
  5. CLONIDINE [Concomitant]
  6. DIGOXIN [Concomitant]
  7. DIPHENHYDRAMINE HCL [Concomitant]
  8. LOVENOX [Concomitant]
  9. DURAGESIC-100 [Concomitant]
  10. DIFLUCAN (FLUCONAZOLE) [Concomitant]
  11. HYDRALAZINE [Concomitant]
  12. IMDUR [Concomitant]
  13. NIZORAL [Concomitant]
  14. INSULIN [Concomitant]

REACTIONS (4)
  - CORONARY ARTERY STENOSIS [None]
  - CRYPTOCOCCAL CUTANEOUS INFECTION [None]
  - DEEP VEIN THROMBOSIS [None]
  - FUNGAL SKIN INFECTION [None]
